FAERS Safety Report 20681434 (Version 1)
Quarter: 2022Q2

REPORT INFORMATION
  Report Type: Spontaneous
  Country: CA (occurrence: CA)
  Receive Date: 20220406
  Receipt Date: 20220406
  Transmission Date: 20220721
  Serious: Yes (Death, Disabling)
  Sender: FDA-Public Use
  Company Number: CA-SA-SAC20220331001092

PATIENT
  Sex: Male

DRUGS (2)
  1. ZANTAC [Suspect]
     Active Substance: RANITIDINE HYDROCHLORIDE
     Dosage: UNK
     Dates: start: 2016, end: 2020
  2. ZANTAC [Suspect]
     Active Substance: RANITIDINE HYDROCHLORIDE

REACTIONS (4)
  - Loss of personal independence in daily activities [Unknown]
  - Illness [Fatal]
  - Pain [Unknown]
  - Anhedonia [Unknown]
